FAERS Safety Report 8818565 (Version 1)
Quarter: 2012Q4

REPORT INFORMATION
  Report Type: Spontaneous
  Country: US (occurrence: None)
  Receive Date: 20121002
  Receipt Date: 20121002
  Transmission Date: 20130627
  Serious: Yes (Other)
  Sender: FDA-Public Use
  Company Number: 2012MA011481

PATIENT
  Age: 21 Year
  Sex: Female

DRUGS (1)
  1. M-ZOLE 3 COMBINATION PACK [Suspect]
     Route: 067
     Dates: start: 20120918

REACTIONS (2)
  - Nausea [None]
  - Vaginal haemorrhage [None]
